APPROVED DRUG PRODUCT: VIGABATRIN
Active Ingredient: VIGABATRIN
Strength: 500MG/PACKET
Dosage Form/Route: FOR SOLUTION;ORAL
Application: A210155 | Product #001 | TE Code: AA
Applicant: AMNEAL PHARMACEUTICALS OF NEW YORK LLC
Approved: Mar 13, 2018 | RLD: No | RS: No | Type: RX